FAERS Safety Report 16735391 (Version 1)
Quarter: 2019Q3

REPORT INFORMATION
  Report Type: Spontaneous
  Country: PT (occurrence: PT)
  Receive Date: 20190823
  Receipt Date: 20190823
  Transmission Date: 20191005
  Serious: Yes (Life-Threatening, Hospitalization)
  Sender: FDA-Public Use
  Company Number: PT-PFIZER INC-2019358491

PATIENT
  Age: 4 Year
  Sex: Male
  Weight: 17 kg

DRUGS (2)
  1. SOLU-MEDROL [Suspect]
     Active Substance: METHYLPREDNISOLONE SODIUM SUCCINATE
     Indication: MILK ALLERGY
     Dosage: 1 DF, 1X/DAY
     Route: 042
     Dates: start: 20190730, end: 20190730
  2. CLEMASTINE [Concomitant]
     Active Substance: CLEMASTINE
     Indication: MILK ALLERGY
     Dates: start: 20190730

REACTIONS (3)
  - Anaphylactic reaction [Recovered/Resolved]
  - Reaction to excipient [Recovered/Resolved]
  - Contraindicated product administered [Recovered/Resolved]

NARRATIVE: CASE EVENT DATE: 20190730
